FAERS Safety Report 5210024-2 (Version None)
Quarter: 2006Q4

REPORT INFORMATION
  Report Type: 
  Country: None (occurrence: None)
  Receive Date: 20061127
  Receipt Date: 20060830
  Transmission Date: 20070319
  Serious: Yes (Hospitalization, Other)
  Sender: FDA-Public Use
  Company Number: 2006BH013119

PATIENT
  Age: 48 Year
  Sex: Female
  Weight: 92.9874 kg

DRUGS (1)
  1. DIANEAL [Suspect]
     Indication: PERITONEAL DIALYSIS
     Dosage: 3 L; UNK; IP
     Route: 033

REACTIONS (3)
  - CHOLECYSTITIS INFECTIVE [None]
  - FUNGAL PERITONITIS [None]
  - PERITONITIS BACTERIAL [None]
